FAERS Safety Report 6382718-7 (Version None)
Quarter: 2009Q3

REPORT INFORMATION
  Report Type: 
  Country: None (occurrence: None)
  Receive Date: 20090930
  Receipt Date: 20090922
  Transmission Date: 20100115
  Serious: Yes (Other)
  Sender: FDA-Public Use
  Company Number: US-JNJCH-2009021617

PATIENT
  Age: 51 Year
  Sex: Female
  Weight: 63.5 kg

DRUGS (1)
  1. LUBRIDERM SENSITIVE SKIN THERAPY [Suspect]
     Indication: DRY SKIN
     Dosage: TEXT:ONCE AS DIRECTED
     Route: 061
     Dates: start: 20090809, end: 20090809

REACTIONS (3)
  - APPLICATION SITE ABSCESS [None]
  - APPLICATION SITE ERYTHEMA [None]
  - APPLICATION SITE IRRITATION [None]
